FAERS Safety Report 7234192-6 (Version None)
Quarter: 2011Q1

REPORT INFORMATION
  Report Type: 
  Country: None (occurrence: None)
  Receive Date: 20110119
  Receipt Date: 20110110
  Transmission Date: 20110831
  Serious: Yes (Hospitalization)
  Sender: FDA-Public Use
  Company Number: US-GENZYME-FABR-1001725

PATIENT
  Sex: Male
  Weight: 83.9 kg

DRUGS (8)
  1. FABRAZYME [Suspect]
     Dosage: 80 MG, Q2W
     Route: 042
     Dates: start: 20101101, end: 20101101
  2. FABRAZYME [Suspect]
     Dosage: 80 MG, Q2W
     Route: 042
     Dates: start: 20081101
  3. PROTONIX [Concomitant]
     Indication: PRODUCT USED FOR UNKNOWN INDICATION
     Dosage: 40 MG, QD
  4. ASPIRIN [Concomitant]
     Indication: PRODUCT USED FOR UNKNOWN INDICATION
     Dosage: 81 MG, QD
  5. DIPHENHYDRAMINE [Concomitant]
     Indication: PREMEDICATION
     Dosage: 50 MG, Q2W
     Route: 042
  6. VICODIN ES [Concomitant]
     Indication: PRODUCT USED FOR UNKNOWN INDICATION
  7. FABRAZYME [Suspect]
     Indication: FABRY'S DISEASE
     Dosage: 40 MG, Q2W
     Route: 042
     Dates: start: 20101201
  8. LISINOPRIL [Concomitant]
     Indication: PRODUCT USED FOR UNKNOWN INDICATION
     Dosage: 10 MG, QD

REACTIONS (3)
  - INTERVERTEBRAL DISC PROTRUSION [None]
  - TRANSIENT ISCHAEMIC ATTACK [None]
  - HEADACHE [None]
